FAERS Safety Report 21471572 (Version 1)
Quarter: 2022Q4

REPORT INFORMATION
  Report Type: Spontaneous
  Country: US (occurrence: None)
  Receive Date: 20221018
  Receipt Date: 20221018
  Transmission Date: 20230112
  Serious: No
  Sender: FDA-Public Use
  Company Number: 2022A344606

PATIENT
  Sex: Female

DRUGS (1)
  1. LYNPARZA [Suspect]
     Active Substance: OLAPARIB
     Indication: Pancreatic carcinoma
     Route: 048

REACTIONS (8)
  - Alopecia [Unknown]
  - Skin infection [Unknown]
  - Pain [Unknown]
  - Paraesthesia [Unknown]
  - Blister [Unknown]
  - Red blood cell count decreased [Unknown]
  - Dyspepsia [Unknown]
  - Headache [Unknown]
